FAERS Safety Report 6946322-1 (Version None)
Quarter: 2010Q3

REPORT INFORMATION
  Report Type: 
  Country: None (occurrence: None)
  Receive Date: 20100824
  Receipt Date: 20100810
  Transmission Date: 20110219
  Serious: Yes (Hospitalization)
  Sender: FDA-Public Use
  Company Number: 017067

PATIENT
  Sex: Female
  Weight: 47.6 kg

DRUGS (6)
  1. CIMZIA [Suspect]
     Indication: CROHN'S DISEASE
     Dosage: (SUBCUTANEOUS)
     Route: 058
     Dates: start: 20100101
  2. MERCAPTOPURINE [Concomitant]
  3. ENTOCORT EC [Concomitant]
  4. PREVACID [Concomitant]
  5. ZYRTEC [Concomitant]
  6. FLEXERIL [Concomitant]

REACTIONS (2)
  - ABSCESS [None]
  - MOVEMENT DISORDER [None]
